FAERS Safety Report 7983527-5 (Version None)
Quarter: 2011Q4

REPORT INFORMATION
  Report Type: 
  Country: None (occurrence: None)
  Receive Date: 20111215
  Receipt Date: 20111209
  Transmission Date: 20120403
  Serious: Yes (Hospitalization)
  Sender: FDA-Public Use
  Company Number: GB-ROCHE-1008104

PATIENT
  Age: 41 Year
  Sex: Male
  Weight: 95 kg

DRUGS (13)
  1. SENNA [Concomitant]
  2. ATORVASTAN [Concomitant]
     Dates: start: 20110401
  3. MOVIPREP [Concomitant]
     Dates: start: 20111027
  4. PARACETAMOL [Concomitant]
     Dates: start: 20111030
  5. MORPHINE SULFATE [Concomitant]
     Dates: start: 20110905
  6. SIMVASTATIN [Concomitant]
     Dates: start: 20110401
  7. AMOXICILLIN AND CLAVULANATE POTASSIUM [Concomitant]
     Dates: start: 20111028
  8. AMOXICILLIN AND CLAVULANATE POTASSIUM [Concomitant]
     Dates: start: 20111027, end: 20111027
  9. AMLODIPINE [Concomitant]
     Dates: start: 20110401
  10. VEMURAFENIB [Suspect]
     Indication: METASTATIC MALIGNANT MELANOMA
     Dosage: 240MG TABLET
     Route: 048
     Dates: start: 20111026
  11. ENOXAPARIN [Concomitant]
     Dates: start: 20111027, end: 20111031
  12. LOSARTAN POTASSIUM [Concomitant]
     Dates: start: 20110401
  13. DIAZEPAM [Concomitant]
     Dates: start: 20110406

REACTIONS (1)
  - PLEURAL EFFUSION [None]
